FAERS Safety Report 19313916 (Version 1)
Quarter: 2021Q2

REPORT INFORMATION
  Report Type: Report from Study
  Country: US (occurrence: US)
  Receive Date: 20210527
  Receipt Date: 20210527
  Transmission Date: 20210717
  Serious: Yes (Other)
  Sender: FDA-Public Use
  Company Number: US-MYLANLABS-2021M1030597

PATIENT
  Sex: Male

DRUGS (6)
  1. TOPOTECAN [Concomitant]
     Active Substance: TOPOTECAN HYDROCHLORIDE
     Indication: CONGENITAL RETINOBLASTOMA
     Dosage: UNK UNK, CYCLE,4 CYCLES AT CURRENT FACILITY TO RIGHT EYE
  2. TOPOTECAN [Concomitant]
     Active Substance: TOPOTECAN HYDROCHLORIDE
     Indication: CONGENITAL RETINOBLASTOMA
     Dosage: UNK UNK, CYCLE, 3 CYCLES AT CURRENT FACILITY TO RIGHT EYE, PERIOCULAR
  3. MELPHALAN. [Suspect]
     Active Substance: MELPHALAN
     Indication: CONGENITAL RETINOBLASTOMA
     Dosage: UNK, CYCLE, PART OF OAC REGIMEN: 3 CYCLES AT CURRENT FACILITY IN THE RIGHT EYE..
     Route: 013
  4. CARBOPLATIN. [Suspect]
     Active Substance: CARBOPLATIN
     Indication: CONGENITAL RETINOBLASTOMA
     Dosage: PART OF OAC REGIMEN: 3 CYCLES AT CURRENT FACILITY IN THE RIGHT EYE...
     Route: 013
  5. TOPOTECAN [Suspect]
     Active Substance: TOPOTECAN HYDROCHLORIDE
     Indication: CONGENITAL RETINOBLASTOMA
     Dosage: UNK, CYCLE,PART OF OAC REGIMEN: 3 CYCLES AT CURRENT FACILITY IN THE RIGHT EYE
     Route: 013
  6. MELPHALAN. [Concomitant]
     Active Substance: MELPHALAN
     Indication: CONGENITAL RETINOBLASTOMA
     Dosage: UNK UNK, CYCLE,4 CYCLES AT CURRENT FACILITY TO RIGHT EYE

REACTIONS (3)
  - Neutropenia [Unknown]
  - Haematotoxicity [Unknown]
  - Off label use [Unknown]
